FAERS Safety Report 23892354 (Version 1)
Quarter: 2024Q2

REPORT INFORMATION
  Report Type: Spontaneous
  Country: US (occurrence: None)
  Receive Date: 20240524
  Receipt Date: 20240524
  Transmission Date: 20240715
  Serious: No
  Sender: FDA-Public Use
  Company Number: US-ROCHE-3432407

PATIENT
  Sex: Female
  Weight: 69.008 kg

DRUGS (5)
  1. OCREVUS [Suspect]
     Active Substance: OCRELIZUMAB
     Indication: Primary progressive multiple sclerosis
     Dosage: YES
     Route: 042
  2. DICLOFENAC SODIUM [Concomitant]
     Active Substance: DICLOFENAC\DICLOFENAC SODIUM
     Indication: Glaucoma
     Dosage: (1 DROP IN BOTH EYES TWICE DAILY)?FORMULATION : 0.1% EYE DROPS
     Route: 047
  3. DORZOLAMIDE\TIMOLOL [Concomitant]
     Active Substance: DORZOLAMIDE\TIMOLOL
     Indication: Glaucoma
     Dosage: (1 DROP IN BOTH EYES TWICE DAILY)?FORMULATION : 0.33% EYE DROPS
     Route: 047
  4. LEXAPRO [Concomitant]
     Active Substance: ESCITALOPRAM OXALATE
     Indication: Anxiety
     Route: 048
  5. ATORVASTATIN CALCIUM [Concomitant]
     Active Substance: ATORVASTATIN CALCIUM
     Indication: Blood cholesterol increased
     Route: 048

REACTIONS (1)
  - Fatigue [Not Recovered/Not Resolved]
